FAERS Safety Report 25683189 (Version 1)
Quarter: 2025Q3

REPORT INFORMATION
  Report Type: Other
  Country: EU (occurrence: EU)
  Receive Date: 20250814
  Receipt Date: 20250814
  Transmission Date: 20251020
  Serious: Yes (Death)
  Sender: SCIECURE PHARMA
  Company Number: EU-Sciecure Pharma Inc.-2182518

PATIENT
  Age: 22 Year
  Sex: Male

DRUGS (1)
  1. PAROXETINE HYDROCHLORIDE [Suspect]
     Active Substance: PAROXETINE HYDROCHLORIDE

REACTIONS (1)
  - Death [Fatal]
